FAERS Safety Report 7394195-8 (Version None)
Quarter: 2011Q2

REPORT INFORMATION
  Report Type: 
  Country: None (occurrence: None)
  Receive Date: 20110405
  Receipt Date: 20110323
  Transmission Date: 20111010
  Serious: Yes (Other)
  Sender: FDA-Public Use
  Company Number: PH-ELI_LILLY_AND_COMPANY-PH201103007408

PATIENT
  Sex: Female

DRUGS (5)
  1. GLUCOBAY [Concomitant]
     Dosage: 100 MG, TID
  2. FORTEO [Suspect]
     Dosage: 20 UG, QD
     Route: 058
     Dates: start: 20101011, end: 20110301
  3. THERABLOC [Concomitant]
     Dosage: 25 MG, UNK
  4. CELEBREX [Concomitant]
     Dosage: 100 MG, UNK
  5. NORGESIC                           /00040301/ [Concomitant]
     Dosage: 100 MG, PRN

REACTIONS (1)
  - THYROID CANCER [None]
